FAERS Safety Report 19510209 (Version 2)
Quarter: 2021Q3

REPORT INFORMATION
  Report Type: Other
  Country: BE (occurrence: BE)
  Receive Date: 20210709
  Receipt Date: 20210715
  Transmission Date: 20211014
  Serious: Yes (Other)
  Sender: FDA-Public Use
  Company Number: BE-ASPEN-GLO2021BE005319

PATIENT

DRUGS (11)
  1. DEXAMETHASONE. [Suspect]
     Active Substance: DEXAMETHASONE
     Indication: CHEMOTHERAPY
  2. NEUPOGEN [Suspect]
     Active Substance: FILGRASTIM
     Indication: B-CELL LYMPHOMA
     Dosage: UNK
     Route: 065
  3. ITRACONAZOLE. [Suspect]
     Active Substance: ITRACONAZOLE
     Indication: PROPHYLAXIS
     Dosage: 20 ML, QD
     Route: 065
  4. CISPLATIN. [Suspect]
     Active Substance: CISPLATIN
     Indication: B-CELL LYMPHOMA
     Dosage: UNK, CYCLIC, INFUSION
     Route: 042
  5. CISPLATIN. [Suspect]
     Active Substance: CISPLATIN
     Indication: CHEMOTHERAPY
  6. MABTHERA [Suspect]
     Active Substance: RITUXIMAB
     Indication: B-CELL LYMPHOMA
  7. COTRIMOXAZOLE [Suspect]
     Active Substance: SULFAMETHOXAZOLE\TRIMETHOPRIM
     Indication: PROPHYLAXIS
     Dosage: 4 TABLETS/WEEK
     Route: 065
  8. CYTARABINE. [Suspect]
     Active Substance: CYTARABINE
     Indication: CHEMOTHERAPY
     Dosage: UNK, CYCLIC HIGH DOSES
     Route: 065
  9. DEXAMETHASONE. [Suspect]
     Active Substance: DEXAMETHASONE
     Indication: B-CELL LYMPHOMA
     Dosage: UNK UNK, CYCLIC HIGH DOSES OF DEXAMETHASONE FOR 4
     Route: 042
  10. CYTARABINE. [Suspect]
     Active Substance: CYTARABINE
     Indication: B-CELL LYMPHOMA
  11. MABTHERA [Suspect]
     Active Substance: RITUXIMAB
     Indication: CHEMOTHERAPY
     Dosage: UNK UNK, CYCLICAL
     Route: 065

REACTIONS (5)
  - Peritonitis bacterial [Recovered/Resolved]
  - Colitis [Recovered/Resolved]
  - Aplasia [Unknown]
  - Off label use [Unknown]
  - Diarrhoea [Unknown]
